FAERS Safety Report 6059820-2 (Version None)
Quarter: 2009Q1

REPORT INFORMATION
  Report Type: 
  Country: None (occurrence: None)
  Receive Date: 20090130
  Receipt Date: 20081021
  Transmission Date: 20090719
  Serious: No
  Sender: FDA-Public Use
  Company Number: US-ABBOTT-08P-163-0482268-00

PATIENT
  Sex: Female
  Weight: 62.198 kg

DRUGS (1)
  1. LUPRON DEPOT [Suspect]
     Indication: INFERTILITY
     Dosage: NOT REPORTED
     Route: 050
     Dates: start: 20070901, end: 20071001

REACTIONS (10)
  - ALOPECIA [None]
  - HOT FLUSH [None]
  - JOINT STIFFNESS [None]
  - JOINT SWELLING [None]
  - MEMORY IMPAIRMENT [None]
  - PAIN [None]
  - PAIN IN EXTREMITY [None]
  - POOR QUALITY SLEEP [None]
  - VISION BLURRED [None]
  - WEIGHT INCREASED [None]
